FAERS Safety Report 22241287 (Version 2)
Quarter: 2023Q2

REPORT INFORMATION
  Report Type: Report from Study
  Country: US (occurrence: US)
  Receive Date: 20230421
  Receipt Date: 20230424
  Transmission Date: 20230721
  Serious: No
  Sender: FDA-Public Use
  Company Number: US-002147023-NVSC2023US088440

PATIENT
  Sex: Female
  Weight: 68.04 kg

DRUGS (7)
  1. DESONIDE [Suspect]
     Active Substance: DESONIDE
     Indication: Psoriasis
     Dosage: 0.5 %
     Route: 061
  2. MOMETASONE [Suspect]
     Active Substance: MOMETASONE
     Indication: Psoriasis
     Dosage: 0.1 %
     Route: 061
  3. TRIAMCINOLONE [Suspect]
     Active Substance: TRIAMCINOLONE
     Indication: Psoriasis
     Dosage: UNK
     Route: 065
  4. METFORMIN [Suspect]
     Active Substance: METFORMIN HYDROCHLORIDE
     Indication: Psoriasis
     Dosage: 500 MG
     Route: 048
  5. CLOBETASOL [Suspect]
     Active Substance: CLOBETASOL
     Indication: Psoriasis
     Dosage: 0.5 %
     Route: 061
  6. PIMECROLIMUS [Suspect]
     Active Substance: PIMECROLIMUS
     Indication: Psoriasis
     Dosage: 1 %
     Route: 061
  7. DOXYCYCLINE [Suspect]
     Active Substance: DOXYCYCLINE
     Indication: Psoriasis
     Dosage: UNK
     Route: 065

REACTIONS (16)
  - Psoriasis [Unknown]
  - Erythema [Unknown]
  - Pruritus [Unknown]
  - Hidradenitis [Unknown]
  - Pustule [Unknown]
  - Scar [Unknown]
  - Pain [Unknown]
  - Papule [Unknown]
  - Inflammation [Unknown]
  - Skin lesion [Unknown]
  - Abscess [Unknown]
  - Wound secretion [Unknown]
  - Fistula [Unknown]
  - Skin plaque [Unknown]
  - Skin exfoliation [Unknown]
  - Product use in unapproved indication [Unknown]
